FAERS Safety Report 13182059 (Version 1)
Quarter: 2017Q1

REPORT INFORMATION
  Report Type: Spontaneous
  Country: KZ (occurrence: KZ)
  Receive Date: 20170202
  Receipt Date: 20170202
  Transmission Date: 20170428
  Serious: Yes (Hospitalization)
  Sender: FDA-Public Use
  Company Number: KZ-JNJFOC-20170128423

PATIENT
  Sex: Male

DRUGS (1)
  1. XARELTO [Suspect]
     Active Substance: RIVAROXABAN
     Indication: EMBOLISM VENOUS
     Route: 048
     Dates: start: 20170106, end: 20170113

REACTIONS (3)
  - Duodenal ulcer [Unknown]
  - Small intestinal haemorrhage [Unknown]
  - Haemoglobin decreased [Unknown]
